FAERS Safety Report 24138637 (Version 9)
Quarter: 2024Q4

REPORT INFORMATION
  Report Type: Spontaneous
  Country: US (occurrence: US)
  Receive Date: 20240725
  Receipt Date: 20241107
  Transmission Date: 20250115
  Serious: Yes (Other)
  Sender: TAKEDA
  Company Number: US-TAKEDA-2024TUS072646

PATIENT
  Age: 65 Year
  Sex: Female
  Weight: 97 kg

DRUGS (6)
  1. GLASSIA [Suspect]
     Active Substance: .ALPHA.1-PROTEINASE INHIBITOR HUMAN
     Indication: Alpha-1 antitrypsin deficiency
     Dosage: 60 MILLIGRAM/KILOGRAM, 1/WEEK
     Route: 042
  2. GLASSIA [Suspect]
     Active Substance: .ALPHA.1-PROTEINASE INHIBITOR HUMAN
     Indication: Alpha-1 antitrypsin deficiency
     Dosage: 60 MILLIGRAM/KILOGRAM, 1/WEEK
     Route: 042
  3. GLASSIA [Suspect]
     Active Substance: .ALPHA.1-PROTEINASE INHIBITOR HUMAN
     Indication: Chronic obstructive pulmonary disease
     Dosage: 60 MILLIGRAM, 1/WEEK
     Route: 065
  4. GLASSIA [Suspect]
     Active Substance: .ALPHA.1-PROTEINASE INHIBITOR HUMAN
     Indication: Chronic obstructive pulmonary disease
     Dosage: 60 MILLIGRAM, 1/WEEK
     Route: 065
  5. GLASSIA [Suspect]
     Active Substance: .ALPHA.1-PROTEINASE INHIBITOR HUMAN
     Dosage: UNK
     Route: 065
  6. GLASSIA [Suspect]
     Active Substance: .ALPHA.1-PROTEINASE INHIBITOR HUMAN
     Dosage: UNK
     Route: 065

REACTIONS (31)
  - Panniculitis [Unknown]
  - Product contamination microbial [Unknown]
  - Oxygen saturation decreased [Unknown]
  - Alopecia [Unknown]
  - Dermatitis [Unknown]
  - Ulcer [Unknown]
  - Skin ulcer [Unknown]
  - Abdominal pain upper [Unknown]
  - Bone pain [Unknown]
  - Arthralgia [Unknown]
  - Hypokinesia [Unknown]
  - Infection parasitic [Unknown]
  - Drug resistance [Unknown]
  - Heart rate decreased [Unknown]
  - Pain [Unknown]
  - General physical health deterioration [Unknown]
  - Inappropriate schedule of product administration [Unknown]
  - Product use issue [Unknown]
  - Product use in unapproved indication [Unknown]
  - Liquid product physical issue [Unknown]
  - Product contamination [Unknown]
  - Total lung capacity decreased [Unknown]
  - Illness [Unknown]
  - Frustration tolerance decreased [Unknown]
  - Anxiety [Unknown]
  - Poor quality product administered [Unknown]
  - Eczema [Unknown]
  - Myalgia [Unknown]
  - Feeling abnormal [Unknown]
  - Urticaria [Unknown]
  - Fatigue [Unknown]

NARRATIVE: CASE EVENT DATE: 20240606
